FAERS Safety Report 7181179-8 (Version None)
Quarter: 2010Q4

REPORT INFORMATION
  Report Type: 
  Country: None (occurrence: None)
  Receive Date: 20101221
  Receipt Date: 20101215
  Transmission Date: 20110411
  Serious: Yes (Other)
  Sender: FDA-Public Use
  Company Number: JP-PFIZER INC-2010173159

PATIENT

DRUGS (3)
  1. LYRICA [Suspect]
     Dosage: UNK
  2. GABAPENTIN [Suspect]
     Dosage: UNK
  3. MORPHINE HYDROCHLORIDE [Concomitant]
     Dosage: UNK

REACTIONS (2)
  - LOSS OF CONSCIOUSNESS [None]
  - ROAD TRAFFIC ACCIDENT [None]
